FAERS Safety Report 4996319-6 (Version None)
Quarter: 2006Q2

REPORT INFORMATION
  Report Type: 
  Country: None (occurrence: None)
  Receive Date: 20060505
  Receipt Date: 20060427
  Transmission Date: 20061013
  Serious: No
  Sender: FDA-Public Use
  Company Number: 2006-140866-NL

PATIENT
  Age: 21 Year
  Sex: Male

DRUGS (4)
  1. MIRTAZAPINE [Suspect]
     Dosage: DF ORAL
     Route: 048
  2. METHADONE HCL [Suspect]
  3. HEROIN [Suspect]
  4. AMFETAMINE [Suspect]
     Dosage: 3G

REACTIONS (12)
  - AGITATION [None]
  - AKATHISIA [None]
  - DEPRESSION [None]
  - DISTURBANCE IN ATTENTION [None]
  - HALLUCINATION, AUDITORY [None]
  - HOMICIDAL IDEATION [None]
  - INSOMNIA [None]
  - PARANOIA [None]
  - PRURITUS [None]
  - PSYCHIATRIC SYMPTOM [None]
  - RESTLESS LEGS SYNDROME [None]
  - SUICIDE ATTEMPT [None]
